FAERS Safety Report 9225825 (Version 1)
Quarter: 2013Q2

REPORT INFORMATION
  Report Type: Other
  Country: GB (occurrence: GB)
  Receive Date: 20130411
  Receipt Date: 20130411
  Transmission Date: 20140414
  Serious: Yes (Other)
  Sender: FDA-Public Use
  Company Number: GB-ACTAVIS-2013-05300

PATIENT
  Age: 41 Year
  Sex: Male

DRUGS (1)
  1. PARACETAMOL [Suspect]
     Indication: MYALGIA
     Dosage: 500 MG, UNK
     Route: 048

REACTIONS (2)
  - Urticaria [Recovered/Resolved]
  - Pruritus [Recovered/Resolved]
